FAERS Safety Report 14362396 (Version 1)
Quarter: 2018Q1

REPORT INFORMATION
  Report Type: Spontaneous
  Country: US (occurrence: US)
  Receive Date: 20180105
  Receipt Date: 20180105
  Transmission Date: 20180509
  Serious: No
  Sender: FDA-Public Use
  Company Number: None

PATIENT
  Age: 60 Year
  Sex: Female

DRUGS (1)
  1. HARVONI [Suspect]
     Active Substance: LEDIPASVIR\SOFOSBUVIR

REACTIONS (9)
  - Gastrointestinal disorder [None]
  - Drug dose omission [None]
  - Blood calcium decreased [None]
  - Diarrhoea [None]
  - Blood potassium decreased [None]
  - Treatment noncompliance [None]
  - Fatigue [None]
  - Blood iron decreased [None]
  - Blood magnesium decreased [None]

NARRATIVE: CASE EVENT DATE: 20180102
